FAERS Safety Report 7438647-0 (Version None)
Quarter: 2011Q2

REPORT INFORMATION
  Report Type: 
  Country: None (occurrence: None)
  Receive Date: 20110426
  Receipt Date: 20110323
  Transmission Date: 20111010
  Serious: Yes (Hospitalization, Other)
  Sender: FDA-Public Use
  Company Number: US-BAYER-2011-002433

PATIENT
  Age: 43 Year
  Sex: Female
  Weight: 61 kg

DRUGS (6)
  1. YAZ [Suspect]
     Indication: CONTRACEPTION
     Dosage: UNK
     Route: 048
     Dates: start: 20070301, end: 20091001
  2. TOPAMAX [Concomitant]
  3. SIMVASTATIN [Concomitant]
     Dosage: UNK
     Dates: start: 20091101
  4. VITAMIIN C [Concomitant]
  5. YAZ [Suspect]
     Indication: ACNE
  6. SYNTHROID [Concomitant]

REACTIONS (6)
  - VISUAL IMPAIRMENT [None]
  - MUSCULAR WEAKNESS [None]
  - VIITH NERVE PARALYSIS [None]
  - CEREBROVASCULAR ACCIDENT [None]
  - DYSARTHRIA [None]
  - FATIGUE [None]
